FAERS Safety Report 14812687 (Version 2)
Quarter: 2018Q2

REPORT INFORMATION
  Report Type: Spontaneous
  Country: FR (occurrence: FR)
  Receive Date: 20180425
  Receipt Date: 20180507
  Transmission Date: 20180711
  Serious: Yes (Life-Threatening, Hospitalization, Other)
  Sender: FDA-Public Use
  Company Number: FR-MERCK KGAA-2046511

PATIENT
  Age: 65 Year
  Sex: Female

DRUGS (2)
  1. NOVOTHYROX [Suspect]
     Active Substance: LEVOTHYROXINE SODIUM
     Dates: end: 201710
  2. NOVOTHYROX [Suspect]
     Active Substance: LEVOTHYROXINE SODIUM
     Indication: POST PROCEDURAL HYPOTHYROIDISM
     Dates: end: 201710

REACTIONS (10)
  - Headache [Recovered/Resolved]
  - Palpitations [None]
  - Hyperthyroidism [None]
  - Myocarditis [None]
  - Dizziness [None]
  - Muscle spasms [Recovered/Resolved]
  - Vertigo [Recovered/Resolved]
  - Cardiac arrest [None]
  - Hypothyroidism [None]
  - Alopecia [None]

NARRATIVE: CASE EVENT DATE: 201708
